FAERS Safety Report 7772456-8 (Version None)
Quarter: 2011Q3

REPORT INFORMATION
  Report Type: 
  Country: None (occurrence: None)
  Receive Date: 20110922
  Receipt Date: 20110915
  Transmission Date: 20111222
  Serious: Yes (Death)
  Sender: FDA-Public Use
  Company Number: PHHO2011RU15761

PATIENT
  Sex: Male
  Weight: 65.1 kg

DRUGS (11)
  1. BLINDED ALISKIREN [Suspect]
     Dosage: CODE NOT BROKEN
     Route: 048
     Dates: start: 20101207, end: 20110523
  2. BLINDED NO TREATMENT RECEIVED [Suspect]
     Indication: CARDIAC FAILURE ACUTE
     Dosage: CODE NOT BROKEN
     Route: 048
     Dates: start: 20101114, end: 20101206
  3. BLINDED NO TREATMENT RECEIVED [Suspect]
     Dosage: CODE NOT BROKEN
     Route: 048
     Dates: start: 20101207, end: 20110523
  4. BLINDED ALISKIREN [Suspect]
     Dosage: CODE NOT BROKEN
     Route: 048
     Dates: start: 20110531, end: 20110913
  5. BLINDED PLACEBO [Suspect]
     Dosage: CODE NOT BROKEN
     Route: 048
     Dates: start: 20110531, end: 20110913
  6. WARFARIN SODIUM [Suspect]
     Indication: ATRIAL FIBRILLATION
     Dosage: 2.5 MG, QD
     Route: 048
     Dates: start: 20101207
  7. BLINDED PLACEBO [Suspect]
     Dosage: CODE NOT BROKEN
     Route: 048
     Dates: start: 20101207, end: 20110523
  8. BLINDED NO TREATMENT RECEIVED [Suspect]
     Dosage: CODE NOT BROKEN
     Route: 048
     Dates: start: 20110531, end: 20110913
  9. BLINDED PLACEBO [Suspect]
     Indication: CARDIAC FAILURE ACUTE
     Dosage: CODE NOT BROKEN
     Route: 048
     Dates: start: 20101114, end: 20101206
  10. OMEPRAZOLE [Concomitant]
     Indication: DUODENAL ULCER
     Dosage: 20 MG, QD
     Route: 048
     Dates: start: 20101124
  11. BLINDED ALISKIREN [Suspect]
     Indication: CARDIAC FAILURE ACUTE
     Dosage: CODE NOT BROKEN
     Route: 048
     Dates: start: 20101114, end: 20101206

REACTIONS (2)
  - INTESTINAL HAEMORRHAGE [None]
  - CONCOMITANT DISEASE PROGRESSION [None]
